FAERS Safety Report 24397512 (Version 2)
Quarter: 2024Q4

REPORT INFORMATION
  Report Type: Spontaneous
  Country: US (occurrence: US)
  Receive Date: 20241004
  Receipt Date: 20241011
  Transmission Date: 20250114
  Serious: Yes (Life-Threatening, Hospitalization, Other)
  Sender: TORRENT
  Company Number: US-TORRENT-00013767

PATIENT
  Age: 26 Year
  Sex: Male

DRUGS (2)
  1. ARIPIPRAZOLE [Suspect]
     Active Substance: ARIPIPRAZOLE
     Indication: Product used for unknown indication
     Dosage: TOXIC INGESTION
     Route: 048
  2. AMLODIPINE [Suspect]
     Active Substance: AMLODIPINE BESYLATE
     Indication: Product used for unknown indication
     Dosage: TOXIC INGESTION
     Route: 048

REACTIONS (14)
  - Vomiting [Unknown]
  - Abdominal pain [Unknown]
  - Distributive shock [Recovering/Resolving]
  - Multiple organ dysfunction syndrome [Recovering/Resolving]
  - Respiratory failure [Unknown]
  - Electrolyte imbalance [Unknown]
  - Renal tubular necrosis [Unknown]
  - Metabolic acidosis [Unknown]
  - Pancreatitis [Unknown]
  - Hypocalcaemia [Recovering/Resolving]
  - Sepsis [Recovering/Resolving]
  - Aspiration [Unknown]
  - Vasoplegia syndrome [Recovering/Resolving]
  - Overdose [Unknown]
